FAERS Safety Report 19028451 (Version 1)
Quarter: 2021Q1

REPORT INFORMATION
  Report Type: Spontaneous
  Country: CA (occurrence: CA)
  Receive Date: 20210319
  Receipt Date: 20210319
  Transmission Date: 20210420
  Serious: Yes (Other)
  Sender: FDA-Public Use
  Company Number: CA-CELLTRION INC.-2020CA034360

PATIENT

DRUGS (4)
  1. XELJANZ [Concomitant]
     Active Substance: TOFACITINIB CITRATE
     Indication: POLYCHONDRITIS
     Dosage: 5 MG, 2X/DAY
     Route: 048
     Dates: start: 202009
  2. INFLECTRA [Suspect]
     Active Substance: INFLIXIMAB-DYYB
     Dosage: 300 MG AT 0, 2, 6 WEEKS THEN EVERY 8 WEEKS
     Route: 042
     Dates: start: 20210127
  3. INFLECTRA [Suspect]
     Active Substance: INFLIXIMAB-DYYB
     Indication: POLYCHONDRITIS
     Dosage: 300 MG AT 0, 2, 6 WEEKS THEN EVERY 8 WEEKS
     Route: 042
     Dates: start: 20201216
  4. PREDNISONE. [Concomitant]
     Active Substance: PREDNISONE
     Dosage: 30 MG
     Route: 065
     Dates: start: 2020

REACTIONS (2)
  - Abscess [Unknown]
  - Off label use [Unknown]

NARRATIVE: CASE EVENT DATE: 20201216
